FAERS Safety Report 9172331 (Version 1)
Quarter: 2013Q1

REPORT INFORMATION
  Report Type: Spontaneous
  Country: US (occurrence: US)
  Receive Date: 20130319
  Receipt Date: 20130319
  Transmission Date: 20140127
  Serious: Yes (Other)
  Sender: FDA-Public Use
  Company Number: US-PFIZER INC-2013091362

PATIENT
  Age: 64 Year
  Sex: Female
  Weight: 81.63 kg

DRUGS (3)
  1. LYRICA [Suspect]
     Dosage: UNK
  2. EFFEXOR [Concomitant]
     Dosage: UNK
  3. OXYGEN [Concomitant]
     Dosage: UNK

REACTIONS (3)
  - Weight increased [Unknown]
  - Weight loss poor [Unknown]
  - Dry mouth [Unknown]
